FAERS Safety Report 25234939 (Version 6)
Quarter: 2025Q2

REPORT INFORMATION
  Report Type: Spontaneous
  Country: AR (occurrence: AR)
  Receive Date: 20250424
  Receipt Date: 20250605
  Transmission Date: 20250716
  Serious: No
  Sender: PFIZER
  Company Number: AR-PFIZER INC-202500086542

PATIENT
  Age: 13 Year
  Sex: Male

DRUGS (1)
  1. GENOTROPIN [Suspect]
     Active Substance: SOMATROPIN
     Indication: Foetal growth restriction
     Dosage: 1.4 MG, DAILY
     Dates: start: 20250408

REACTIONS (2)
  - Drug dose omission by device [Unknown]
  - Device breakage [Unknown]

NARRATIVE: CASE EVENT DATE: 20250416
